FAERS Safety Report 9734006 (Version 2)
Quarter: 2014Q1

REPORT INFORMATION
  Report Type: Spontaneous
  Country: BR (occurrence: BR)
  Receive Date: 20131205
  Receipt Date: 20140106
  Transmission Date: 20141002
  Serious: Yes (Other)
  Sender: FDA-Public Use
  Company Number: PHHY2013BR141853

PATIENT
  Age: 82 Year
  Sex: Female

DRUGS (3)
  1. VOLTAREN [Suspect]
     Indication: PAIN
     Dosage: 50 MG TABLETS, UNK
     Route: 048
     Dates: start: 2012
  2. VOLTAREN [Suspect]
     Dosage: UNK, ONCE/SINGLE
     Route: 030
     Dates: start: 2012
  3. VOLTAREN [Suspect]
     Dosage: 100 MG (2X50 MG TABLETS), ONCE/SINGLE
     Dates: start: 20131202

REACTIONS (4)
  - Bone disorder [Unknown]
  - Pain in extremity [Unknown]
  - Musculoskeletal pain [Unknown]
  - Drug ineffective [Unknown]
